FAERS Safety Report 9412659 (Version 1)
Quarter: 2013Q2

REPORT INFORMATION
  Report Type: Spontaneous
  Country: US (occurrence: None)
  Receive Date: 20130605
  Receipt Date: 20130605
  Transmission Date: 20140414
  Serious: Yes (Life-Threatening, Other)
  Sender: FDA-Public Use
  Company Number: 54973 AE # 1382

PATIENT
  Age: 17 Month
  Sex: Male
  Weight: 12.16 kg

DRUGS (1)
  1. HYLAND^S BABY TEETHING TABLETS [Suspect]
     Indication: TEETHING
     Dosage: 3 TABS X 4 DOSES X 2 WEEKS

REACTIONS (7)
  - Rash [None]
  - Dyskinesia [None]
  - Convulsion [None]
  - Tremor [None]
  - Pyrexia [None]
  - Irritability [None]
  - Urine output decreased [None]
